FAERS Safety Report 8169341-9 (Version None)
Quarter: 2012Q1

REPORT INFORMATION
  Report Type: 
  Country: None (occurrence: None)
  Receive Date: 20120228
  Receipt Date: 20120220
  Transmission Date: 20120608
  Serious: Yes (Other)
  Sender: FDA-Public Use
  Company Number: US-AMGEN-USASP2011060442

PATIENT
  Age: 67 Year
  Sex: Female

DRUGS (1)
  1. PROLIA [Suspect]
     Indication: OSTEOPOROSIS POSTMENOPAUSAL
     Dosage: 60 MG, Q6MO
     Route: 030
     Dates: start: 20111005

REACTIONS (5)
  - INJECTION SITE RASH [None]
  - INCORRECT ROUTE OF DRUG ADMINISTRATION [None]
  - LIP SWELLING [None]
  - URTICARIA [None]
  - INJECTION SITE PRURITUS [None]
